FAERS Safety Report 10044336 (Version 2)
Quarter: 2014Q2

REPORT INFORMATION
  Report Type: Spontaneous
  Country: US (occurrence: US)
  Receive Date: 20140328
  Receipt Date: 20140430
  Transmission Date: 20141212
  Serious: Yes (Death, Other)
  Sender: FDA-Public Use
  Company Number: US-PFIZER INC-2014086987

PATIENT
  Age: 23 Year
  Sex: Female
  Weight: 51.25 kg

DRUGS (5)
  1. OXYCODONE HYDROCHLORIDE [Suspect]
     Dosage: 30 MG, UNK
     Route: 065
  2. ALCOHOL [Suspect]
     Dosage: UNK
     Route: 065
  3. HEROIN [Suspect]
  4. CYCLOBENZAPRINE [Concomitant]
     Dosage: UNK
  5. RANITIDINE [Concomitant]
     Dosage: UNK

REACTIONS (1)
  - Overdose [Fatal]
